FAERS Safety Report 7380848-4 (Version None)
Quarter: 2011Q1

REPORT INFORMATION
  Report Type: 
  Country: None (occurrence: None)
  Receive Date: 20110329
  Receipt Date: 20110322
  Transmission Date: 20110831
  Serious: Yes (Hospitalization, Other)
  Sender: FDA-Public Use
  Company Number: B0708850A

PATIENT
  Sex: Female
  Weight: 87 kg

DRUGS (1)
  1. AUGMENTIN [Suspect]
     Indication: PNEUMONIA
     Route: 048
     Dates: start: 20110101, end: 20110101

REACTIONS (8)
  - RENAL FAILURE ACUTE [None]
  - AMYLOIDOSIS [None]
  - HEPATIC ENZYME ABNORMAL [None]
  - HEPATIC FUNCTION ABNORMAL [None]
  - BLOOD BILIRUBIN INCREASED [None]
  - RENAL AMYLOIDOSIS [None]
  - FAECES DISCOLOURED [None]
  - DIALYSIS [None]
